FAERS Safety Report 5110502-0 (Version None)
Quarter: 2006Q3

REPORT INFORMATION
  Report Type: 
  Country: None (occurrence: None)
  Receive Date: 20060921
  Receipt Date: 20060912
  Transmission Date: 20061208
  Serious: Yes (Other)
  Sender: FDA-Public Use
  Company Number: PHBS2006JP14043

PATIENT

DRUGS (2)
  1. LAMISIL [Suspect]
     Route: 048
  2. DRUG THERAPY NOS [Concomitant]
     Indication: RHINITIS ALLERGIC

REACTIONS (1)
  - MYOCARDIAL INFARCTION [None]
